FAERS Safety Report 15626227 (Version 1)
Quarter: 2018Q4

REPORT INFORMATION
  Report Type: Spontaneous
  Country: US (occurrence: US)
  Receive Date: 20181112
  Receipt Date: 20181112
  Transmission Date: 20190205
  Serious: No
  Sender: FDA-Public Use
  Company Number: None

PATIENT
  Age: 32 Year
  Sex: Male

DRUGS (1)
  1. TEMOZOLOMIDE 180MG CAP [Suspect]
     Active Substance: TEMOZOLOMIDE
     Dates: start: 201807

REACTIONS (1)
  - Candida infection [None]

NARRATIVE: CASE EVENT DATE: 20181109
